FAERS Safety Report 24975782 (Version 3)
Quarter: 2025Q1

REPORT INFORMATION
  Report Type: Report from Study
  Country: KR (occurrence: KR)
  Receive Date: 20250217
  Receipt Date: 20250331
  Transmission Date: 20250409
  Serious: No
  Sender: AMGEN
  Company Number: KR-AMGEN-KORNI2025025383

PATIENT
  Age: 75 Year
  Sex: Male

DRUGS (2)
  1. TARLATAMAB [Suspect]
     Active Substance: TARLATAMAB
     Indication: Small cell lung cancer
     Route: 040
     Dates: start: 20241030
  2. TARLATAMAB [Suspect]
     Active Substance: TARLATAMAB
     Route: 040
     Dates: end: 20241216

REACTIONS (3)
  - Disease progression [Unknown]
  - Fat tissue increased [Unknown]
  - Dyspnoea [Unknown]
